FAERS Safety Report 18981380 (Version 2)
Quarter: 2021Q2

REPORT INFORMATION
  Report Type: Report from Study
  Country: None (occurrence: US)
  Receive Date: 20210308
  Receipt Date: 20210414
  Transmission Date: 20210717
  Serious: Yes (Other)
  Sender: FDA-Public Use
  Company Number: US-ABBVIE-21K-163-3803163-00

PATIENT
  Age: 61 Year
  Sex: Female

DRUGS (1)
  1. RINVOQ [Suspect]
     Active Substance: UPADACITINIB
     Indication: RHEUMATOID ARTHRITIS
     Route: 048
     Dates: start: 202006

REACTIONS (8)
  - Herpes zoster [Recovered/Resolved]
  - Blood cholesterol increased [Not Recovered/Not Resolved]
  - Cellulitis [Recovering/Resolving]
  - Illness [Recovered/Resolved]
  - Skin cancer [Recovered/Resolved]
  - Weight increased [Not Recovered/Not Resolved]
  - Herpes zoster [Recovering/Resolving]
  - Abdominal pain upper [Recovered/Resolved]

NARRATIVE: CASE EVENT DATE: 202006
